FAERS Safety Report 8072308-2 (Version None)
Quarter: 2012Q1

REPORT INFORMATION
  Report Type: 
  Country: None (occurrence: None)
  Receive Date: 20120126
  Receipt Date: 20120117
  Transmission Date: 20120608
  Serious: Yes (Hospitalization)
  Sender: FDA-Public Use
  Company Number: NL-JNJFOC-20110608218

PATIENT
  Sex: Female
  Weight: 40.2 kg

DRUGS (3)
  1. AZATHIOPRINE [Concomitant]
  2. HUMIRA [Concomitant]
     Dates: start: 20110610
  3. REMICADE [Suspect]
     Indication: CROHN'S DISEASE
     Route: 042
     Dates: start: 20110311, end: 20110426

REACTIONS (1)
  - WEIGHT DECREASED [None]
